FAERS Safety Report 24721420 (Version 1)
Quarter: 2024Q4

REPORT INFORMATION
  Report Type: Spontaneous
  Country: CZ (occurrence: CZ)
  Receive Date: 20241211
  Receipt Date: 20241211
  Transmission Date: 20250114
  Serious: Yes (Hospitalization, Disabling, Other)
  Sender: MERCK
  Company Number: None

PATIENT
  Age: 66 Year
  Sex: Male
  Weight: 88 kg

DRUGS (16)
  1. KEYTRUDA [Suspect]
     Active Substance: PEMBROLIZUMAB
     Indication: Prostate cancer
     Dosage: 3 DOSES IN TOTAL
     Route: 042
     Dates: start: 20240701, end: 20240812
  2. LENVATINIB MESYLATE [Suspect]
     Active Substance: LENVATINIB MESYLATE
     Indication: Prostate cancer
     Route: 048
     Dates: start: 20240701, end: 20240821
  3. LENVATINIB MESYLATE [Suspect]
     Active Substance: LENVATINIB MESYLATE
     Dosage: 10 MILLIGRAM
     Route: 048
     Dates: start: 20241010, end: 20241121
  4. ORGOVYX [Suspect]
     Active Substance: RELUGOLIX
     Indication: Prostate cancer
     Dosage: 1-0-0
     Route: 048
     Dates: start: 20240614, end: 20240822
  5. ORGOVYX [Suspect]
     Active Substance: RELUGOLIX
     Dosage: 1-0-0
     Route: 048
     Dates: start: 20240906, end: 20241030
  6. FIRMAGON [Suspect]
     Active Substance: DEGARELIX ACETATE
     Indication: Prostate cancer
     Dosage: 80 MILLIGRAM, ONCE
     Route: 030
     Dates: start: 20241107, end: 20241107
  7. PREDNISONE [Concomitant]
     Active Substance: PREDNISONE
     Indication: Immune-mediated lung disease
     Dosage: 1-0-0
  8. DENOSUMAB [Concomitant]
     Active Substance: DENOSUMAB
  9. SPORANOX [Concomitant]
     Active Substance: ITRACONAZOLE
     Indication: Candida infection
     Dosage: DISCONTINUED DUE TO HEPATOPATHY
     Route: 048
     Dates: start: 20240902, end: 20240905
  10. SERETIDE [Concomitant]
     Active Substance: FLUTICASONE PROPIONATE\SALMETEROL XINAFOATE
     Dosage: 1-0-1
  11. FENOTEROL HYDROBROMIDE\IPRATROPIUM BROMIDE [Concomitant]
     Active Substance: FENOTEROL HYDROBROMIDE\IPRATROPIUM BROMIDE
     Dosage: 2-3 TIMES DAILY
  12. AMLODIPINE BESYLATE\PERINDOPRIL ARGININE [Concomitant]
     Active Substance: AMLODIPINE BESYLATE\PERINDOPRIL ARGININE
     Dosage: 1-0-0
  13. CALCIUM CARBONATE [Concomitant]
     Active Substance: CALCIUM CARBONATE
     Dosage: 0-1-0
  14. ALLOPURINOL [Concomitant]
     Active Substance: ALLOPURINOL
     Dosage: 0-1-0
  15. LAGOS TARGEL [Concomitant]
     Dosage: 1-1-1
  16. THEOPHYLLINE [Concomitant]
     Active Substance: THEOPHYLLINE
     Dosage: 0-0-1

REACTIONS (2)
  - Liver disorder [Unknown]
  - Hepatic enzyme increased [Unknown]

NARRATIVE: CASE EVENT DATE: 20240822
